FAERS Safety Report 5047243-4 (Version None)
Quarter: 2006Q3

REPORT INFORMATION
  Report Type: 
  Country: None (occurrence: None)
  Receive Date: 20060703
  Receipt Date: 20060626
  Transmission Date: 20061208
  Serious: Yes (Death, Hospitalization)
  Sender: FDA-Public Use
  Company Number: 430001E06DEU

PATIENT
  Age: 67 Year
  Sex: Male

DRUGS (4)
  1. NOVANTRONE [Suspect]
     Indication: ACUTE MYELOID LEUKAEMIA
     Dates: start: 20041021, end: 20041027
  2. GEMTUZUMAB OZOGAMICIN (GEMTUZUMAB OZOGAMICIN) [Suspect]
     Indication: ACUTE MYELOID LEUKAEMIA
     Dosage: 12 MG
     Dates: start: 20041013, end: 20041013
  3. CYTARABINE [Suspect]
     Indication: ACUTE MYELOID LEUKAEMIA
     Dates: start: 20041021, end: 20041027
  4. ETOPOSIDE [Suspect]
     Indication: ACUTE MYELOID LEUKAEMIA
     Dates: start: 20041021, end: 20041027

REACTIONS (4)
  - BRONCHOPULMONARY ASPERGILLOSIS [None]
  - FULL BLOOD COUNT DECREASED [None]
  - LUNG INFILTRATION [None]
  - SEPTIC SHOCK [None]
